FAERS Safety Report 9943964 (Version 1)
Quarter: 2014Q1

REPORT INFORMATION
  Report Type: Spontaneous
  Country: DK (occurrence: CH)
  Receive Date: 20140303
  Receipt Date: 20140303
  Transmission Date: 20141002
  Serious: Yes (Hospitalization)
  Sender: FDA-Public Use
  Company Number: CH-FRI-1000054766

PATIENT
  Age: 73 Year
  Sex: Female
  Weight: 72 kg

DRUGS (10)
  1. ESCITALOPRAM [Suspect]
     Indication: BIPOLAR DISORDER
     Dosage: 15 MG
     Route: 048
     Dates: start: 2009
  2. RISPERDAL [Suspect]
     Indication: BIPOLAR DISORDER
     Dosage: 1 MG
     Route: 048
     Dates: start: 2009, end: 20131003
  3. TEMESTA [Suspect]
     Indication: BIPOLAR DISORDER
     Dosage: 1.5 MG
     Route: 048
     Dates: start: 2009, end: 20091010
  4. DEPAKINE CHRONO [Concomitant]
     Indication: BIPOLAR DISORDER
     Dosage: 1200 MG
     Route: 048
     Dates: start: 2009
  5. RIVOTRIL [Concomitant]
     Indication: BIPOLAR DISORDER
     Dosage: 0.5 MG
     Route: 048
     Dates: start: 20131011
  6. IMOVANE [Concomitant]
     Indication: INSOMNIA
     Dosage: 7.5 MG
     Route: 048
  7. INDERAL [Concomitant]
     Indication: ESSENTIAL TREMOR
     Dosage: 80 MG
     Route: 048
     Dates: start: 20130928, end: 20131008
  8. ARIMIDEX [Concomitant]
     Indication: AROMATASE INHIBITION THERAPY
     Dosage: 1 MG
     Route: 048
     Dates: start: 2011
  9. MYSOLINE [Concomitant]
     Indication: ESSENTIAL TREMOR
     Dosage: 125 MG
     Route: 048
     Dates: start: 20131009
  10. MYSOLINE [Concomitant]
     Dosage: 250 MG
     Route: 048
     Dates: start: 20131012

REACTIONS (1)
  - Essential tremor [Not Recovered/Not Resolved]
